FAERS Safety Report 21985704 (Version 2)
Quarter: 2023Q1

REPORT INFORMATION
  Report Type: Spontaneous
  Country: US (occurrence: US)
  Receive Date: 20230213
  Receipt Date: 20230301
  Transmission Date: 20230418
  Serious: No
  Sender: FDA-Public Use
  Company Number: US-SA-SAC20230210000020

PATIENT
  Age: 28 Year
  Sex: Male

DRUGS (1)
  1. CAPRELSA [Suspect]
     Active Substance: VANDETANIB
     Indication: Thyroid cancer
     Dosage: 300 MG QD
     Route: 048
     Dates: start: 20221118

REACTIONS (3)
  - Red blood cell count increased [Unknown]
  - Pain [Unknown]
  - Acne [Unknown]
